FAERS Safety Report 21052140 (Version 1)
Quarter: 2022Q3

REPORT INFORMATION
  Report Type: Report from Study
  Country: GB (occurrence: None)
  Receive Date: 20220707
  Receipt Date: 20220707
  Transmission Date: 20221026
  Serious: Yes (Other)
  Sender: FDA-Public Use
  Company Number: GB-Merck Healthcare KGaA-9334527

PATIENT
  Age: 53 Year
  Sex: Female

DRUGS (1)
  1. MAVENCLAD [Suspect]
     Active Substance: CLADRIBINE
     Indication: Multiple sclerosis
     Dosage: FIRST WEEK THERAPY: AT 2 TABLET ON DAY 1 AND 1 TABLET ON DAY 2 TO 5
     Route: 048
     Dates: start: 20220620

REACTIONS (4)
  - Loss of consciousness [Unknown]
  - Blood pressure decreased [Unknown]
  - Visual impairment [Unknown]
  - Tinnitus [Unknown]

NARRATIVE: CASE EVENT DATE: 20220601
